FAERS Safety Report 5728989-9 (Version None)
Quarter: 2008Q2

REPORT INFORMATION
  Report Type: 
  Country: None (occurrence: None)
  Receive Date: 20080501
  Receipt Date: 20080422
  Transmission Date: 20081010
  Serious: Yes (Hospitalization)
  Sender: FDA-Public Use
  Company Number: 2008BI002149

PATIENT
  Sex: Female

DRUGS (1)
  1. AVONEX [Suspect]
     Indication: MULTIPLE SCLEROSIS
     Dosage: IM
     Route: 030
     Dates: start: 20071201

REACTIONS (16)
  - ASTHENIA [None]
  - BILIARY TRACT DISORDER [None]
  - BODY TEMPERATURE INCREASED [None]
  - CRYING [None]
  - EMOTIONAL DISORDER [None]
  - HAEMORRHAGE [None]
  - HEADACHE [None]
  - HEPATIC MASS [None]
  - HYPOACUSIS [None]
  - INFLUENZA [None]
  - MASS [None]
  - MOVEMENT DISORDER [None]
  - MULTIPLE SCLEROSIS RELAPSE [None]
  - MUSCLE SPASTICITY [None]
  - PANCREATIC MASS [None]
  - RENAL DISORDER [None]
